FAERS Safety Report 22613868 (Version 1)
Quarter: 2023Q2

REPORT INFORMATION
  Report Type: Spontaneous
  Country: US (occurrence: US)
  Receive Date: 20230619
  Receipt Date: 20230619
  Transmission Date: 20230722
  Serious: No
  Sender: FDA-Public Use
  Company Number: US-drreddys-SPO/USA/23/0165294

PATIENT
  Age: 51 Year
  Sex: Female

DRUGS (2)
  1. CAPECITABINE [Suspect]
     Active Substance: CAPECITABINE
     Indication: Mucinous cystadenocarcinoma ovary
     Dosage: ON DAYS 1-14
     Route: 048
  2. OXALIPLATIN [Suspect]
     Active Substance: OXALIPLATIN
     Indication: Mucinous cystadenocarcinoma ovary

REACTIONS (6)
  - Drug intolerance [Unknown]
  - Nausea [Unknown]
  - Constipation [Unknown]
  - Vomiting [Unknown]
  - Weight decreased [Unknown]
  - Product use in unapproved indication [Unknown]
